FAERS Safety Report 7435031-0 (Version None)
Quarter: 2011Q2

REPORT INFORMATION
  Report Type: 
  Country: None (occurrence: None)
  Receive Date: 20110415
  Receipt Date: 20110412
  Transmission Date: 20111010
  Serious: Yes (Hospitalization)
  Sender: FDA-Public Use
  Company Number: WAES 1104USA01629

PATIENT
  Age: 65 Year
  Sex: Female

DRUGS (3)
  1. INFUSION (FORM) ELOTUZUMAB UNK [Suspect]
     Indication: MULTIPLE MYELOMA
     Dosage: 20 MG/KG/IV
     Route: 042
     Dates: start: 20100713
  2. DEXAMETHASONE [Suspect]
     Indication: MULTIPLE MYELOMA
     Dosage: 40 MG/PO
     Route: 048
     Dates: start: 20100712
  3. LENALIDOMIDE [Suspect]
     Indication: MULTIPLE MYELOMA
     Dosage: 25 MG/PO
     Route: 048
     Dates: start: 20100712

REACTIONS (1)
  - PULMONARY EMBOLISM [None]
